FAERS Safety Report 8543551-0 (Version None)
Quarter: 2012Q3

REPORT INFORMATION
  Report Type: 
  Country: None (occurrence: None)
  Receive Date: 20120727
  Receipt Date: 20120723
  Transmission Date: 20120928
  Serious: Yes (Hospitalization)
  Sender: FDA-Public Use
  Company Number: US-CELGENEUS-163-20785-12072680

PATIENT
  Sex: Female

DRUGS (4)
  1. POTASSIUM CHLORIDE [Concomitant]
     Route: 065
  2. THALOMID [Suspect]
     Dosage: 50 MILLIGRAM
     Route: 048
     Dates: start: 20120706
  3. OXYCODONE HCL [Concomitant]
     Route: 065
  4. PERCOCET [Concomitant]
     Route: 065

REACTIONS (4)
  - ABASIA [None]
  - DYSARTHRIA [None]
  - NERVE INJURY [None]
  - CONFUSIONAL STATE [None]
